FAERS Safety Report 11220227 (Version 2)
Quarter: 2015Q4

REPORT INFORMATION
  Report Type: Report from Study
  Country: US (occurrence: US)
  Receive Date: 20150625
  Receipt Date: 20151005
  Transmission Date: 20160304
  Serious: Yes (Other)
  Sender: FDA-Public Use
  Company Number: US-EXELIXIS-CABO-14004125

PATIENT
  Sex: Female
  Weight: 86 kg

DRUGS (14)
  1. COMETRIQ [Suspect]
     Active Substance: CABOZANTINIB S-MALATE
     Dosage: 100 MG, QD
     Route: 048
     Dates: start: 20140424, end: 2014
  2. CYCLOBENZAPRINE [Concomitant]
     Active Substance: CYCLOBENZAPRINE
  3. NORVASC [Concomitant]
     Active Substance: AMLODIPINE BESYLATE
  4. MORPHINE SULFATE. [Concomitant]
     Active Substance: MORPHINE SULFATE
  5. COMETRIQ [Suspect]
     Active Substance: CABOZANTINIB S-MALATE
     Indication: THYROID CANCER
     Dosage: 140 MG, QD
     Route: 048
     Dates: start: 20140305, end: 20140423
  6. CELEXA [Concomitant]
     Active Substance: CITALOPRAM HYDROBROMIDE
  7. TRAMADOL. [Concomitant]
     Active Substance: TRAMADOL
  8. METOPROLOL [Concomitant]
     Active Substance: METOPROLOL
  9. LOVASTATIN. [Concomitant]
     Active Substance: LOVASTATIN
  10. ZOFRAN [Concomitant]
     Active Substance: ONDANSETRON HYDROCHLORIDE
  11. LEVOTHYROXINE. [Concomitant]
     Active Substance: LEVOTHYROXINE
  12. OXYCODONE [Concomitant]
     Active Substance: OXYCODONE
  13. COMETRIQ [Suspect]
     Active Substance: CABOZANTINIB S-MALATE
     Dosage: 100 MG, QD
     Route: 048
     Dates: start: 2014
  14. AMBIEN [Concomitant]
     Active Substance: ZOLPIDEM TARTRATE

REACTIONS (15)
  - Nasal congestion [Unknown]
  - Stomatitis [Unknown]
  - Acne [Not Recovered/Not Resolved]
  - Malaise [Unknown]
  - Influenza [Unknown]
  - Weight decreased [Unknown]
  - Nasopharyngitis [Unknown]
  - Nausea [Unknown]
  - Diarrhoea [Not Recovered/Not Resolved]
  - Gallbladder operation [Unknown]
  - Sinusitis [Unknown]
  - Hypertension [Not Recovered/Not Resolved]
  - Pain [Unknown]
  - Hair colour changes [Not Recovered/Not Resolved]
  - Decreased appetite [Unknown]

NARRATIVE: CASE EVENT DATE: 2014
